FAERS Safety Report 7619891-6 (Version None)
Quarter: 2011Q3

REPORT INFORMATION
  Report Type: 
  Country: None (occurrence: None)
  Receive Date: 20110719
  Receipt Date: 20110705
  Transmission Date: 20111222
  Serious: Yes (Other)
  Sender: FDA-Public Use
  Company Number: CZ-SANOFI-AVENTIS-2011SA044343

PATIENT
  Age: 74 Year
  Sex: Male
  Weight: 71 kg

DRUGS (8)
  1. PERINDOPRIL ERBUMINE [Concomitant]
     Route: 065
  2. CARVEDILOL [Concomitant]
     Route: 065
  3. DRONEDARONE HCL [Suspect]
     Indication: ATRIAL FIBRILLATION
     Route: 048
     Dates: start: 20101027, end: 20110307
  4. FUROSEMIDE [Concomitant]
     Route: 065
     Dates: end: 20101102
  5. FUROSEMIDE [Concomitant]
     Route: 065
     Dates: start: 20101103
  6. FUROSEMIDE [Concomitant]
     Route: 065
     Dates: start: 20101202
  7. ROSUVASTATIN [Concomitant]
     Route: 065
  8. WARFARIN SODIUM [Concomitant]

REACTIONS (1)
  - CARDIAC FAILURE [None]
